FAERS Safety Report 8388644-6 (Version None)
Quarter: 2012Q2

REPORT INFORMATION
  Report Type: 
  Country: None (occurrence: None)
  Receive Date: 20120525
  Receipt Date: 20120517
  Transmission Date: 20120825
  Serious: Yes (Hospitalization, Disabling)
  Sender: FDA-Public Use
  Company Number: US-MERCK-1202USA03508

PATIENT
  Age: 52 Year
  Sex: Female
  Weight: 72 kg

DRUGS (6)
  1. FOSAMAX PLUS D [Suspect]
     Indication: OSTEOPOROSIS
     Route: 048
     Dates: start: 20080101, end: 20081101
  2. FOSAMAX [Suspect]
     Indication: OSTEOPOROSIS
     Route: 048
     Dates: start: 20000601, end: 20071201
  3. FOSAMAX [Suspect]
     Route: 048
     Dates: start: 20000601, end: 20000701
  4. FOSAMAX [Suspect]
     Route: 048
     Dates: start: 20000601, end: 20000701
  5. FOSAMAX PLUS D [Suspect]
     Indication: OSTEOPENIA
     Route: 048
     Dates: start: 20080101, end: 20081101
  6. FOSAMAX [Suspect]
     Indication: OSTEOPENIA
     Route: 048
     Dates: start: 20000601, end: 20071201

REACTIONS (14)
  - CORNEAL DYSTROPHY [None]
  - UTERINE DISORDER [None]
  - ARTHRITIS [None]
  - CALCULUS URETERIC [None]
  - CERVICAL DYSPLASIA [None]
  - RECTOCELE [None]
  - FEMUR FRACTURE [None]
  - LOW TURNOVER OSTEOPATHY [None]
  - TOOTH DISORDER [None]
  - SPINAL OSTEOARTHRITIS [None]
  - PAIN IN EXTREMITY [None]
  - VAGINAL DISORDER [None]
  - NASAL DISORDER [None]
  - CYSTOCELE [None]
